FAERS Safety Report 24996078 (Version 1)
Quarter: 2025Q1

REPORT INFORMATION
  Report Type: Spontaneous
  Country: US (occurrence: US)
  Receive Date: 20250221
  Receipt Date: 20250221
  Transmission Date: 20250408
  Serious: No
  Sender: CATALYST PHARMA
  Company Number: US-CATALYST PHARMACEUTICALS-US-CATA-25-00023

PATIENT
  Age: 15 Year
  Sex: Male
  Weight: 69.687 kg

DRUGS (9)
  1. AGAMREE [Suspect]
     Active Substance: VAMOROLONE
     Indication: Duchenne muscular dystrophy
     Dosage: 5 ML (200 MG) DAILY
     Route: 048
     Dates: start: 20241118, end: 202501
  2. AGAMREE [Suspect]
     Active Substance: VAMOROLONE
     Dosage: 2 ML (80 MG) DAILY
     Route: 048
     Dates: start: 202501, end: 20250204
  3. ALBUTEROL SULFATE [Concomitant]
     Active Substance: ALBUTEROL SULFATE
     Indication: Hypersensitivity
     Route: 055
  4. LISINOPRIL [Concomitant]
     Active Substance: LISINOPRIL
     Indication: Cardiac disorder
     Dosage: 10 MG DAILY
     Route: 048
  5. MEIJER LORATADINE [Concomitant]
     Indication: Hypersensitivity
     Dosage: 5 ML DAILY
     Route: 048
  6. MONTELUKAST [Concomitant]
     Active Substance: MONTELUKAST
     Indication: Hypersensitivity
     Dosage: 5 MG DAILY
     Route: 048
  7. PROZAC [Concomitant]
     Active Substance: FLUOXETINE HYDROCHLORIDE
     Indication: Anxiety
     Dosage: 40 MG DAILY
     Route: 048
  8. SPIRONOLACTONE [Concomitant]
     Active Substance: SPIRONOLACTONE
     Indication: Cardiovascular disorder
     Dosage: 25 MG DAILY
     Route: 048
  9. VITAMIN D3 [Concomitant]
     Active Substance: CHOLECALCIFEROL
     Indication: Hypovitaminosis
     Dosage: 25 MCG DAILY
     Route: 048

REACTIONS (8)
  - Migraine [Unknown]
  - Asthenia [Unknown]
  - Nausea [Unknown]
  - Muscular weakness [Not Recovered/Not Resolved]
  - Illness [Unknown]
  - Vomiting [Unknown]
  - Headache [Unknown]
  - Drug ineffective [Unknown]

NARRATIVE: CASE EVENT DATE: 20241101
